FAERS Safety Report 4625642-X (Version None)
Quarter: 2005Q1

REPORT INFORMATION
  Report Type: 
  Country: None (occurrence: None)
  Receive Date: 20050330
  Receipt Date: 20050315
  Transmission Date: 20050727
  Serious: Yes (Other)
  Sender: FDA-Public Use
  Company Number: GBS050316928

PATIENT
  Age: 63 Year
  Sex: Female

DRUGS (3)
  1. CEFACLOR [Suspect]
     Indication: TONSILLITIS
     Dosage: 500 MG/3 DAY
     Dates: start: 20050301, end: 20050305
  2. WARFARIN SODIUM [Concomitant]
  3. MEFLOQUINE [Concomitant]

REACTIONS (2)
  - CONTUSION [None]
  - INTERNATIONAL NORMALISED RATIO INCREASED [None]
